FAERS Safety Report 19433962 (Version 3)
Quarter: 2021Q4

REPORT INFORMATION
  Report Type: Spontaneous
  Country: US (occurrence: US)
  Receive Date: 20210618
  Receipt Date: 20211026
  Transmission Date: 20220303
  Serious: No
  Sender: FDA-Public Use
  Company Number: US-PFIZER INC-2021319401

PATIENT
  Age: 76 Year
  Sex: Female
  Weight: 49.43 kg

DRUGS (9)
  1. IBRANCE [Suspect]
     Active Substance: PALBOCICLIB
     Indication: Breast cancer female
     Dosage: 125 MG, CYCLIC (21 DAYS ON, 7 DAYS OFF)
     Route: 048
     Dates: start: 20210122, end: 20210319
  2. FOLIC ACID [Concomitant]
     Active Substance: FOLIC ACID
  3. MINERALS\VITAMINS [Concomitant]
     Active Substance: MINERALS\VITAMINS
  4. GARLIC (DEODORIZED) [Concomitant]
  5. QUERCITIN [Concomitant]
  6. TURMERIC CURCUMIN [CURCUMA LONGA] [Concomitant]
  7. ASCORBIC ACID [Concomitant]
     Active Substance: ASCORBIC ACID
  8. MENAQUINONE [Concomitant]
  9. CHOLECALCIFEROL [Concomitant]
     Active Substance: CHOLECALCIFEROL

REACTIONS (3)
  - Platelet count decreased [Unknown]
  - Osteoporosis [Not Recovered/Not Resolved]
  - Lymphoedema [Not Recovered/Not Resolved]

NARRATIVE: CASE EVENT DATE: 20210317
